FAERS Safety Report 5515530-9 (Version None)
Quarter: 2007Q4

REPORT INFORMATION
  Report Type: 
  Country: None (occurrence: None)
  Receive Date: 20071113
  Receipt Date: 20070320
  Transmission Date: 20080405
  Serious: No
  Sender: FDA-Public Use
  Company Number: A0643916A

PATIENT
  Age: 73 Year
  Sex: Female

DRUGS (7)
  1. COREG [Suspect]
     Dosage: 6.25MG PER DAY
     Route: 048
  2. ECOTRIN [Concomitant]
  3. GLYBURIDE [Concomitant]
  4. LISINOPRIL [Concomitant]
  5. FUROSEMIDE [Concomitant]
  6. LORAZEPAM [Concomitant]
  7. TAMOXIFEN CITRATE [Concomitant]

REACTIONS (2)
  - DIZZINESS [None]
  - FEELING ABNORMAL [None]
